FAERS Safety Report 5023824-9 (Version None)
Quarter: 2006Q2

REPORT INFORMATION
  Report Type: 
  Country: None (occurrence: None)
  Receive Date: 20060606
  Receipt Date: 20060530
  Transmission Date: 20061013
  Serious: Yes (Death)
  Sender: FDA-Public Use
  Company Number: 2006BH010456

PATIENT
  Sex: Male

DRUGS (1)
  1. MORPHINE SULFATE [Suspect]
     Indication: OFF LABEL USE
     Dosage: PO
     Route: 048
     Dates: start: 19950101, end: 19950101

REACTIONS (2)
  - OFF LABEL USE [None]
  - VICTIM OF HOMICIDE [None]
